FAERS Safety Report 4943899-2 (Version None)
Quarter: 2006Q1

REPORT INFORMATION
  Report Type: 
  Country: None (occurrence: None)
  Receive Date: 20060310
  Receipt Date: 20060228
  Transmission Date: 20060701
  Serious: Yes (Other)
  Sender: FDA-Public Use
  Company Number: 2006030077

PATIENT
  Age: 74 Year
  Sex: Female
  Weight: 82.5547 kg

DRUGS (7)
  1. LIPITOR [Suspect]
     Indication: BLOOD CHOLESTEROL INCREASED
     Dosage: 20 MG (20 MG, 1 IN 1 D), ORAL
     Route: 048
  2. GABAPENTIN [Suspect]
     Indication: NEUROPATHY
     Dosage: 600 MG (300 MG, 2 IN 1 D), ORAL
     Route: 048
     Dates: start: 20051101, end: 20060201
  3. LYRICA [Suspect]
     Indication: NEUROPATHY
     Dosage: 150 MG, (75 MG, 2 IN 1 D), ORAL
     Route: 048
     Dates: start: 20060201
  4. CHEMOTHERAPY NOS (CHEMOTHERAPY NOS) [Suspect]
     Indication: LUNG NEOPLASM MALIGNANT
     Dates: start: 20051101, end: 20060101
  5. PROTONIX [Concomitant]
  6. PREDNISONE TAB [Concomitant]
  7. LEXAPRO [Concomitant]

REACTIONS (6)
  - DRUG EFFECT DECREASED [None]
  - DRUG INEFFECTIVE [None]
  - HYPOAESTHESIA [None]
  - LUNG NEOPLASM MALIGNANT [None]
  - NEUROPATHY [None]
  - WHITE BLOOD CELL COUNT DECREASED [None]
